FAERS Safety Report 8548337-9 (Version None)
Quarter: 2012Q3

REPORT INFORMATION
  Report Type: 
  Country: None (occurrence: None)
  Receive Date: 20120730
  Receipt Date: 20120720
  Transmission Date: 20120928
  Serious: Yes (Other)
  Sender: FDA-Public Use
  Company Number: CZ-JNJFOC-20120711099

PATIENT
  Sex: Male

DRUGS (9)
  1. METOPROLOL TARTRATE [Concomitant]
     Route: 048
  2. PALIPERIDONE [Suspect]
     Indication: SCHIZOPHRENIA
     Dosage: INTRAMUSCULAR APPLICATION INTO UPPER LEFT EXTREMITY
     Route: 030
     Dates: start: 20120702, end: 20120702
  3. AKINETON [Concomitant]
     Route: 048
  4. FORMOTEROL FUMARATE [Concomitant]
     Route: 055
  5. PALIPERIDONE [Suspect]
     Dosage: INTRAMUSCULAR APPLICATION INTO UPPER RIGHT EXTREMITY
     Route: 030
     Dates: start: 20120709, end: 20120709
  6. THEOPHYLLINE [Concomitant]
     Route: 048
  7. CLOZAPINE [Concomitant]
     Route: 048
  8. SINGULAIR [Concomitant]
     Route: 048
  9. LACTULOSA [Concomitant]
     Route: 065

REACTIONS (4)
  - PAIN IN EXTREMITY [None]
  - OEDEMA [None]
  - INFLAMMATION [None]
  - ERYTHEMA [None]
